FAERS Safety Report 7648355-9 (Version None)
Quarter: 2011Q3

REPORT INFORMATION
  Report Type: 
  Country: None (occurrence: None)
  Receive Date: 20110801
  Receipt Date: 20110726
  Transmission Date: 20111222
  Serious: Yes (Hospitalization, Other)
  Sender: FDA-Public Use
  Company Number: US-PFIZER INC-2009272900

PATIENT
  Sex: Female
  Weight: 90 kg

DRUGS (4)
  1. XALATAN [Suspect]
     Indication: OCULAR HYPERTENSION
     Dosage: EVERY NIGHT, 1 DROP IN LOWER CUL-DE SAC
     Dates: start: 20090101
  2. XALATAN [Suspect]
     Indication: GLAUCOMA
  3. LATANOPROST [Suspect]
     Indication: GLAUCOMA
     Dosage: UNK
     Dates: end: 20110620
  4. XALATAN [Suspect]
     Indication: INTRAOCULAR PRESSURE INCREASED
     Dosage: UNK

REACTIONS (5)
  - TEMPOROMANDIBULAR JOINT SYNDROME [None]
  - INTRAOCULAR PRESSURE INCREASED [None]
  - ABDOMINAL DISCOMFORT [None]
  - DYSPEPSIA [None]
  - NAUSEA [None]
